FAERS Safety Report 6492928-6 (Version None)
Quarter: 2009Q4

REPORT INFORMATION
  Report Type: 
  Country: None (occurrence: None)
  Receive Date: 20091214
  Receipt Date: 20091204
  Transmission Date: 20100525
  Serious: Yes (Hospitalization, Other)
  Sender: FDA-Public Use
  Company Number: PHEH2009US13412

PATIENT
  Sex: Female

DRUGS (5)
  1. RECLAST [Suspect]
     Indication: OSTEOPOROSIS
     Dosage: 5 MG
     Route: 042
     Dates: start: 20090223
  2. VICODIN [Concomitant]
     Dosage: 750 MG, TID
     Route: 048
  3. TRAZODONE HCL [Concomitant]
     Dosage: 200 MG QHS PM
     Route: 048
  4. MOBIC [Concomitant]
     Dosage: 15 MG DAILY
     Route: 048
  5. PREVACID [Concomitant]
     Dosage: 30 MG DAILY
     Route: 048

REACTIONS (5)
  - CHEST PAIN [None]
  - LOSS OF CONSCIOUSNESS [None]
  - PAIN [None]
  - PALPITATIONS [None]
  - TREMOR [None]
